FAERS Safety Report 10246819 (Version 1)
Quarter: 2014Q2

REPORT INFORMATION
  Report Type: Spontaneous
  Country: GB (occurrence: GB)
  Receive Date: 20140619
  Receipt Date: 20140619
  Transmission Date: 20141212
  Serious: Yes (Other)
  Sender: FDA-Public Use
  Company Number: GB-ACTAVIS-2014-12771

PATIENT
  Age: 37 Year
  Sex: Male
  Weight: 73 kg

DRUGS (3)
  1. RANITIDINE (UNKNOWN) [Suspect]
     Indication: DUODENITIS
     Dosage: 75 MG, UNKNOWN
     Route: 048
     Dates: start: 20140523
  2. CETIRIZINE HYDROCHLORIDE [Concomitant]
     Indication: PRODUCT USED FOR UNKNOWN INDICATION
     Dosage: UNK
     Route: 065
  3. LANSOPRAZOLE [Concomitant]
     Indication: DUODENITIS
     Dosage: UNK
     Route: 065

REACTIONS (3)
  - Hallucination, visual [Not Recovered/Not Resolved]
  - Aggression [Not Recovered/Not Resolved]
  - Mood altered [Not Recovered/Not Resolved]
